FAERS Safety Report 5082633-5 (Version None)
Quarter: 2006Q3

REPORT INFORMATION
  Report Type: 
  Country: None (occurrence: None)
  Receive Date: 20060814
  Receipt Date: 20060803
  Transmission Date: 20061208
  Serious: Yes (Hospitalization)
  Sender: FDA-Public Use
  Company Number: 225649

PATIENT
  Sex: Male

DRUGS (2)
  1. RAPTIVA [Suspect]
     Dosage: 85 MG, 1/WEEK, SUBCUTANEOUS
     Route: 058
     Dates: start: 20050901
  2. OMEPRAZOLE [Concomitant]

REACTIONS (3)
  - ECZEMA [None]
  - HEPATITIS ACUTE [None]
  - RASH [None]
